FAERS Safety Report 10953813 (Version 2)
Quarter: 2015Q1

REPORT INFORMATION
  Report Type: Spontaneous
  Country: US (occurrence: US)
  Receive Date: 20150325
  Receipt Date: 20150329
  Transmission Date: 20150721
  Serious: No
  Sender: FDA-Public Use
  Company Number: US-AMGEN-USASP2015027660

PATIENT
  Age: 56 Year
  Sex: Male

DRUGS (1)
  1. ENBREL [Suspect]
     Active Substance: ETANERCEPT
     Indication: RHEUMATOID ARTHRITIS
     Dosage: 50 MG, QWK
     Route: 065
     Dates: start: 20100528

REACTIONS (5)
  - Visual acuity reduced [Not Recovered/Not Resolved]
  - Viral infection [Recovered/Resolved]
  - Accidental exposure to product [Recovered/Resolved]
  - Malaise [Recovered/Resolved]
  - Injection site paraesthesia [Not Recovered/Not Resolved]

NARRATIVE: CASE EVENT DATE: 20150321
